FAERS Safety Report 5245651-X (Version None)
Quarter: 2007Q1

REPORT INFORMATION
  Report Type: 
  Country: None (occurrence: None)
  Receive Date: 20070216
  Receipt Date: 20070209
  Transmission Date: 20070707
  Serious: Yes (Other)
  Sender: FDA-Public Use
  Company Number: 2006S1000244

PATIENT
  Age: 60 Year
  Sex: Female

DRUGS (3)
  1. CUBICIN [Suspect]
     Indication: ENDOCARDITIS STAPHYLOCOCCAL
     Dosage: 420 MG;Q24H; IV
     Route: 042
     Dates: start: 20060908, end: 20061005
  2. FOSCARNET [Concomitant]
  3. VANCOMYCIN HYDROCHLORIDE [Concomitant]

REACTIONS (4)
  - DISEASE RECURRENCE [None]
  - ENDOCARDITIS STAPHYLOCOCCAL [None]
  - HAEMORRHAGE [None]
  - THROMBOCYTOPENIA [None]
